FAERS Safety Report 4598432-4 (Version None)
Quarter: 2005Q1

REPORT INFORMATION
  Report Type: 
  Country: None (occurrence: None)
  Receive Date: 20050304
  Receipt Date: 20040922
  Transmission Date: 20050727
  Serious: Yes (Death, Other)
  Sender: FDA-Public Use
  Company Number: FR-ABBOTT-04P-056-0274411-00

PATIENT
  Sex: Male

DRUGS (2)
  1. DEPAKENE [Suspect]
     Indication: CONVULSION PROPHYLAXIS
     Route: 048
     Dates: start: 20040730, end: 20040903
  2. DEPAKENE [Suspect]

REACTIONS (3)
  - HEPATOCELLULAR DAMAGE [None]
  - LYMPHADENOPATHY [None]
  - PANCREATITIS [None]
